FAERS Safety Report 10950788 (Version 2)
Quarter: 2015Q2

REPORT INFORMATION
  Report Type: Spontaneous
  Country: BR (occurrence: BR)
  Receive Date: 20150324
  Receipt Date: 20150403
  Transmission Date: 20150821
  Serious: Yes (Death)
  Sender: FDA-Public Use
  Company Number: BR-PFIZER INC-2015100832

PATIENT
  Age: 94 Year
  Sex: Male

DRUGS (11)
  1. TILATIL [Concomitant]
     Active Substance: TENOXICAM
     Indication: SPINAL PAIN
  2. VOLTAREN [Concomitant]
     Active Substance: DICLOFENAC SODIUM
     Indication: PAIN
     Dosage: UNK, AS NEEDED
  3. FIBRASE [Suspect]
     Active Substance: CHLORAMPHENICOL
     Indication: HYPERSENSITIVITY
     Dosage: UNK
  4. FIBRASE [Suspect]
     Active Substance: CHLORAMPHENICOL
     Indication: PAIN
  5. PHENERGAN [Concomitant]
     Active Substance: PROMETHAZINE HYDROCHLORIDE
     Indication: HYPERSENSITIVITY
     Dosage: UNK, AS NEEDED
  6. TILATIL [Concomitant]
     Active Substance: TENOXICAM
     Indication: RHEUMATIC DISORDER
  7. FIBRASE [Suspect]
     Active Substance: CHLORAMPHENICOL
     Indication: VARICOSE ULCERATION
  8. FIBRASE [Suspect]
     Active Substance: CHLORAMPHENICOL
     Indication: WOUND
  9. TILATIL [Concomitant]
     Active Substance: TENOXICAM
     Indication: BONE PAIN
  10. POLARAMINE [Concomitant]
     Active Substance: DEXCHLORPHENIRAMINE MALEATE
     Indication: HYPERSENSITIVITY
     Dosage: UNK, AS NEEDED
  11. IBUPROFEN. [Concomitant]
     Active Substance: IBUPROFEN
     Indication: PAIN
     Dosage: UNK, AS NEEDED

REACTIONS (2)
  - Multi-organ failure [Fatal]
  - Product use issue [Unknown]
